FAERS Safety Report 8000265-3 (Version None)
Quarter: 2011Q4

REPORT INFORMATION
  Report Type: 
  Country: None (occurrence: None)
  Receive Date: 20111222
  Receipt Date: 20111212
  Transmission Date: 20120403
  Serious: Yes (Hospitalization)
  Sender: FDA-Public Use
  Company Number: US-BAYER-2011-092395

PATIENT
  Age: 45 Year
  Sex: Female
  Weight: 91 kg

DRUGS (3)
  1. YASMIN [Suspect]
     Indication: NEOPLASM PROPHYLAXIS
  2. NSAID'S [Concomitant]
     Dosage: UNK
     Dates: start: 19900101
  3. YASMIN [Suspect]
     Indication: CONTRACEPTION
     Dosage: UNK
     Dates: start: 20060601, end: 20091017

REACTIONS (2)
  - INJURY [None]
  - PULMONARY EMBOLISM [None]
